FAERS Safety Report 10343410 (Version 1)
Quarter: 2014Q3

REPORT INFORMATION
  Report Type: Report from Study
  Country: US (occurrence: US)
  Receive Date: 20140725
  Receipt Date: 20140725
  Transmission Date: 20150326
  Serious: Yes (Other)
  Sender: FDA-Public Use
  Company Number: US-ELI_LILLY_AND_COMPANY-US201407006311

PATIENT
  Sex: Female

DRUGS (5)
  1. DULOXETINE HYDROCHLORIDE. [Suspect]
     Active Substance: DULOXETINE HYDROCHLORIDE
     Dosage: 60 MG, UNKNOWN
  2. CLONAZEPAM. [Concomitant]
     Active Substance: CLONAZEPAM
     Indication: PRODUCT USED FOR UNKNOWN INDICATION
     Dosage: UNK, UNKNOWN
     Route: 065
  3. DULOXETINE HYDROCHLORIDE. [Suspect]
     Active Substance: DULOXETINE HYDROCHLORIDE
     Dosage: 30 MG, UNKNOWN
     Route: 065
  4. DULOXETINE HYDROCHLORIDE. [Suspect]
     Active Substance: DULOXETINE HYDROCHLORIDE
     Indication: FIBROMYALGIA
     Dosage: 30 MG, UNKNOWN
     Route: 065
     Dates: start: 2010
  5. DULOXETINE HYDROCHLORIDE. [Suspect]
     Active Substance: DULOXETINE HYDROCHLORIDE
     Dosage: 60 MG, UNKNOWN
     Route: 065

REACTIONS (23)
  - Suicidal ideation [Unknown]
  - Depression [Unknown]
  - Claustrophobia [Unknown]
  - Hallucination, auditory [Unknown]
  - Peripheral coldness [Unknown]
  - Paraesthesia [Unknown]
  - Drug ineffective [Unknown]
  - Weight increased [Unknown]
  - Emotional disorder [Unknown]
  - Anger [Unknown]
  - Drug withdrawal syndrome [Unknown]
  - Mood swings [Unknown]
  - Vomiting [Unknown]
  - Muscle twitching [Unknown]
  - Libido decreased [Unknown]
  - Dizziness [Unknown]
  - Convulsion [Unknown]
  - Crying [Unknown]
  - Nightmare [Unknown]
  - Muscle spasms [Unknown]
  - Pain threshold decreased [Unknown]
  - Visual impairment [Unknown]
  - Nausea [Unknown]
